FAERS Safety Report 18586095 (Version 1)
Quarter: 2020Q4

REPORT INFORMATION
  Report Type: Spontaneous
  Country: US (occurrence: US)
  Receive Date: 20201207
  Receipt Date: 20201207
  Transmission Date: 20210114
  Serious: Yes (Other)
  Sender: FDA-Public Use
  Company Number: US-PFIZER INC-2020479271

PATIENT
  Age: 42 Year
  Sex: Female

DRUGS (1)
  1. IBRANCE [Suspect]
     Active Substance: PALBOCICLIB
     Dosage: UNK

REACTIONS (6)
  - Cartilage injury [Unknown]
  - Blood count abnormal [Unknown]
  - Gait disturbance [Unknown]
  - Fatigue [Unknown]
  - Walking aid user [Unknown]
  - Neoplasm progression [Unknown]
